FAERS Safety Report 6371551-8 (Version None)
Quarter: 2009Q3

REPORT INFORMATION
  Report Type: 
  Country: None (occurrence: None)
  Receive Date: 20090923
  Receipt Date: 20080423
  Transmission Date: 20100115
  Serious: Yes (Hospitalization)
  Sender: FDA-Public Use
  Company Number: US-ASTRAZENECA-2007UW19424

PATIENT
  Age: 549 Month
  Sex: Male
  Weight: 113.4 kg

DRUGS (18)
  1. SEROQUEL [Suspect]
     Indication: DEPRESSION
     Route: 048
     Dates: start: 20031101, end: 20040701
  2. SEROQUEL [Suspect]
     Indication: STRESS
     Route: 048
     Dates: start: 20031101, end: 20040701
  3. SEROQUEL [Suspect]
     Indication: ANXIETY
     Route: 048
     Dates: start: 20031101, end: 20040701
  4. SEROQUEL [Suspect]
     Dosage: 25MG - 100MG
     Route: 048
     Dates: start: 20040118
  5. SEROQUEL [Suspect]
     Dosage: 25MG - 100MG
     Route: 048
     Dates: start: 20040118
  6. SEROQUEL [Suspect]
     Dosage: 25MG - 100MG
     Route: 048
     Dates: start: 20040118
  7. EFIXIER [Concomitant]
     Dates: start: 20020101
  8. AMBIEN [Concomitant]
     Dosage: 5-10 MG
     Route: 048
     Dates: start: 20031125
  9. XANAX [Concomitant]
     Dates: start: 20031125
  10. XANAX [Concomitant]
     Dates: start: 20041217
  11. PREVACID [Concomitant]
     Route: 048
     Dates: start: 20031125
  12. NIASPAN [Concomitant]
     Route: 048
     Dates: start: 20031125
  13. ZOLOFT [Concomitant]
     Route: 048
     Dates: start: 20040101
  14. MIRAPEX [Concomitant]
     Route: 048
     Dates: start: 20040101
  15. PRAVACHOL [Concomitant]
     Route: 048
     Dates: start: 19990513
  16. ASPIRIN [Concomitant]
     Dates: start: 19990513
  17. ASPIRIN [Concomitant]
     Route: 048
     Dates: start: 20031125
  18. METAGLIP [Concomitant]
     Dosage: 2.5 - 5.0
     Route: 048
     Dates: start: 20040101

REACTIONS (5)
  - BLOOD TRIGLYCERIDES INCREASED [None]
  - DIABETES MELLITUS [None]
  - DIABETES MELLITUS INADEQUATE CONTROL [None]
  - OBESITY [None]
  - TYPE 1 DIABETES MELLITUS [None]
